FAERS Safety Report 5216608-X (Version None)
Quarter: 2007Q1

REPORT INFORMATION
  Report Type: 
  Country: None (occurrence: None)
  Receive Date: 20061130
  Receipt Date: 20060501
  Transmission Date: 20070707
  Serious: Yes (Other)
  Sender: FDA-Public Use
  Company Number: US200605000330

PATIENT
  Age: 39 Year
  Sex: Female
  Weight: 84.4 kg

DRUGS (1)
  1. ZYPREXA [Suspect]

REACTIONS (3)
  - AMENORRHOEA [None]
  - BLOOD PROLACTIN DECREASED [None]
  - WEIGHT INCREASED [None]
